FAERS Safety Report 4601331-2 (Version None)
Quarter: 2005Q1

REPORT INFORMATION
  Report Type: 
  Country: None (occurrence: None)
  Receive Date: 20050304
  Receipt Date: 20021111
  Transmission Date: 20050727
  Serious: Yes (Death)
  Sender: FDA-Public Use
  Company Number: 2002133088US

PATIENT
  Age: 31 Year
  Sex: 0

DRUGS (1)
  1. DIPHENHYDRAMINE (DIPHENHYDRAMNE) [Suspect]
     Dosage: ORAL
     Route: 048

REACTIONS (2)
  - COMPLETED SUICIDE [None]
  - OVERDOSE [None]
